FAERS Safety Report 23867349 (Version 1)
Quarter: 2024Q2

REPORT INFORMATION
  Report Type: Spontaneous
  Country: US (occurrence: None)
  Receive Date: 20240516
  Receipt Date: 20240516
  Transmission Date: 20240716
  Serious: Yes (Hospitalization)
  Sender: FDA-Public Use
  Company Number: None

PATIENT
  Age: 45 Year
  Sex: Male

DRUGS (1)
  1. SYPRINE [Suspect]
     Active Substance: TRIENTINE HYDROCHLORIDE
     Indication: Hepato-lenticular degeneration
     Dosage: FREQUENCY : 3 TIMES A DAY;?
     Route: 048

REACTIONS (3)
  - Aggression [None]
  - Therapy interrupted [None]
  - Feeling abnormal [None]

NARRATIVE: CASE EVENT DATE: 20240511
